FAERS Safety Report 10138976 (Version 2)
Quarter: 2015Q1

REPORT INFORMATION
  Report Type: Other
  Country: US (occurrence: US)
  Receive Date: 20140429
  Receipt Date: 20150227
  Transmission Date: 20150720
  Serious: Yes (Hospitalization, Other)
  Sender: FDA-Public Use
  Company Number: US-GSKPPD-2014GSK040341

PATIENT
  Age: 51 Year
  Sex: Male

DRUGS (7)
  1. AVANDIA [Suspect]
     Active Substance: ROSIGLITAZONE MALEATE
     Indication: DIABETES MELLITUS
     Dosage: DATES OF AVANDIA USE COULD NOT BE CONFIRMED IN RECORDS REVIEWED.
     Route: 048
  2. COREG [Concomitant]
     Active Substance: CARVEDILOL
  3. LOPRESSOR [Concomitant]
     Active Substance: METOPROLOL TARTRATE
     Dates: end: 20050826
  4. DIOVAN [Concomitant]
     Active Substance: VALSARTAN
  5. LANOXIN [Concomitant]
     Active Substance: DIGOXIN
  6. ASPIRIN. [Concomitant]
     Active Substance: ASPIRIN
  7. BUMEX [Concomitant]
     Active Substance: BUMETANIDE

REACTIONS (3)
  - Myocardial infarction [Unknown]
  - Angina unstable [Recovered/Resolved]
  - Ischaemic cardiomyopathy [Recovered/Resolved]

NARRATIVE: CASE EVENT DATE: 20050816
